FAERS Safety Report 6159044-4 (Version None)
Quarter: 2009Q2

REPORT INFORMATION
  Report Type: 
  Country: None (occurrence: None)
  Receive Date: 20090417
  Receipt Date: 20090415
  Transmission Date: 20091009
  Serious: Yes (Other)
  Sender: FDA-Public Use
  Company Number: FR-PFIZER INC-2009167760

PATIENT

DRUGS (2)
  1. TAHOR [Suspect]
     Dosage: 10 MG, UNK
     Dates: end: 20090210
  2. DRUG, UNSPECIFIED [Concomitant]
     Dosage: UNK

REACTIONS (1)
  - CYTOLYTIC HEPATITIS [None]
